FAERS Safety Report 23406353 (Version 3)
Quarter: 2025Q4

REPORT INFORMATION
  Report Type: Spontaneous
  Country: US (occurrence: US)
  Receive Date: 20240116
  Receipt Date: 20251216
  Transmission Date: 20260118
  Serious: No
  Sender: SANOFI AVENTIS
  Company Number: US-SA-SAC20240110000458

PATIENT
  Age: 57 Year
  Sex: Male

DRUGS (1)
  1. KEVZARA [Suspect]
     Active Substance: SARILUMAB
     Indication: Rheumatoid arthritis
     Dosage: 200 MG, QOW
     Route: 058
     Dates: start: 202309

REACTIONS (5)
  - Dysphagia [Unknown]
  - Oropharyngeal discomfort [Unknown]
  - Fatigue [Unknown]
  - Chest pain [Unknown]
  - Nasopharyngitis [Unknown]
